APPROVED DRUG PRODUCT: MORPHINE SULFATE
Active Ingredient: MORPHINE SULFATE
Strength: 100MG
Dosage Form/Route: TABLET, EXTENDED RELEASE;ORAL
Application: A076438 | Product #001 | TE Code: AB
Applicant: SPECGX LLC
Approved: Jul 3, 2003 | RLD: No | RS: No | Type: RX